FAERS Safety Report 5123622-1 (Version None)
Quarter: 2006Q4

REPORT INFORMATION
  Report Type: 
  Country: None (occurrence: None)
  Receive Date: 20061010
  Receipt Date: 20060927
  Transmission Date: 20070319
  Serious: Yes (Hospitalization)
  Sender: FDA-Public Use
  Company Number: US-AMGEN-US194949

PATIENT
  Age: 57 Year
  Sex: Female

DRUGS (3)
  1. EPOGEN [Suspect]
     Indication: DIALYSIS
     Route: 058
     Dates: start: 20060101
  2. ANTIBIOTICS NOS [Concomitant]
     Route: 065
     Dates: start: 20060901
  3. ZYVOX [Concomitant]
     Route: 065

REACTIONS (3)
  - BLOOD IRON DECREASED [None]
  - IRON BINDING CAPACITY TOTAL DECREASED [None]
  - STAPHYLOCOCCAL SEPSIS [None]
